FAERS Safety Report 5402225-5 (Version None)
Quarter: 2007Q3

REPORT INFORMATION
  Report Type: 
  Country: None (occurrence: None)
  Receive Date: 20070727
  Receipt Date: 20070720
  Transmission Date: 20080115
  Serious: Yes (Other)
  Sender: FDA-Public Use
  Company Number: 2007-03440

PATIENT
  Age: 57 Year
  Sex: Male

DRUGS (8)
  1. METHYLPHYENIDATE HCL [Suspect]
     Indication: DEPRESSIVE SYMPTOM
     Dosage: ORAL
     Route: 048
  2. METHYLPHYENIDATE HCL [Suspect]
     Indication: DISTURBANCE IN ATTENTION
     Dosage: ORAL
     Route: 048
  3. CYCLOSPORINE [Concomitant]
  4. VENLAFAXINE HCL [Concomitant]
  5. OMEPRAZOLE [Concomitant]
  6. HYDROCHLOROTHIAZIDE [Concomitant]
  7. FOSINOPRIL SODIUM [Concomitant]
  8. MULTIVITAMINS (ERGOCALCIFEROL, RETINOL, RIBOFLAVIN, NICOTINAMIDE, PANT [Concomitant]

REACTIONS (1)
  - AUTOIMMUNE HEPATITIS [None]
